FAERS Safety Report 8777012 (Version 2)
Quarter: 2012Q4

REPORT INFORMATION
  Report Type: 
  Country: TR (occurrence: TR)
  Receive Date: 20120911
  Receipt Date: 20121005
  Transmission Date: 20130627
  Serious: Yes (Hospitalization)
  Sender: FDA-Public Use
  Company Number: TR-WATSON-2012-15579

PATIENT
  Age: 25 Year
  Sex: Male

DRUGS (5)
  1. OLANZAPINE [Suspect]
     Indication: MAJOR DEPRESSION
     Dosage: 5 mg, daily
     Route: 065
  2. OLANZAPINE [Suspect]
     Dosage: UNK
  3. VENLAFAXINE HYDROCHLORIDE [Suspect]
     Indication: MAJOR DEPRESSION
     Dosage: 150 mg, daily
     Route: 065
  4. SERTRALINE HYDROCHLORIDE [Suspect]
     Indication: MAJOR DEPRESSION
     Dosage: 50 mg, daily
     Route: 065
  5. MIRTAZAPINE [Suspect]
     Indication: MAJOR DEPRESSION
     Dosage: 30 mg, daily
     Route: 065

REACTIONS (3)
  - Sinus arrhythmia [Recovered/Resolved]
  - Syncope [Recovered/Resolved]
  - Sinus arrhythmia [None]
